FAERS Safety Report 8041151-2 (Version None)
Quarter: 2012Q1

REPORT INFORMATION
  Report Type: 
  Country: None (occurrence: None)
  Receive Date: 20120112
  Receipt Date: 20120104
  Transmission Date: 20120608
  Serious: Yes (Other)
  Sender: FDA-Public Use
  Company Number: FR-BRISTOL-MYERS SQUIBB COMPANY-16333205

PATIENT
  Age: 52 Year
  Sex: Male
  Weight: 111 kg

DRUGS (6)
  1. METHOTREXATE SODIUM [Concomitant]
  2. XANAX [Concomitant]
  3. ORENCIA [Suspect]
     Dosage: NUMBER OF COURSE: 30
     Route: 042
     Dates: start: 20090301, end: 20110929
  4. UVEDOSE [Concomitant]
  5. INDAPAMIDE [Concomitant]
  6. PAROXETINE HCL [Concomitant]

REACTIONS (3)
  - INFUSION RELATED REACTION [None]
  - DRUG INEFFECTIVE [None]
  - CARDIAC FAILURE [None]
